FAERS Safety Report 16600060 (Version 1)
Quarter: 2019Q3

REPORT INFORMATION
  Report Type: Spontaneous
  Country: NZ (occurrence: NZ)
  Receive Date: 20190719
  Receipt Date: 20190719
  Transmission Date: 20191004
  Serious: Yes (Other)
  Sender: FDA-Public Use
  Company Number: NZ-ALLERGAN-1929201US

PATIENT
  Sex: Male

DRUGS (1)
  1. MORPHINE SULFATE UNK [Suspect]
     Active Substance: MORPHINE SULFATE
     Indication: PRODUCT USED FOR UNKNOWN INDICATION
     Dosage: 10 MG, Q4HR
     Route: 065

REACTIONS (8)
  - Compartment syndrome [Recovered/Resolved]
  - Gait disturbance [Recovered/Resolved]
  - Pain [Recovered/Resolved]
  - Ligament rupture [Recovered/Resolved]
  - Meniscus injury [Recovered/Resolved]
  - Pain in extremity [Recovered/Resolved]
  - Peripheral swelling [Recovered/Resolved]
  - Deep vein thrombosis [Recovered/Resolved]
